FAERS Safety Report 8881952 (Version 1)
Quarter: 2012Q4

REPORT INFORMATION
  Report Type: Report from Study
  Country: GR (occurrence: GR)
  Receive Date: 20121105
  Receipt Date: 20121105
  Transmission Date: 20130627
  Serious: Yes (Death)
  Sender: FDA-Public Use
  Company Number: GR-ABBOTT-12P-066-1003290-00

PATIENT
  Age: 77 Year
  Sex: Female
  Weight: 36.5 kg

DRUGS (2)
  1. ZEMPLAR [Suspect]
     Indication: RENAL FAILURE CHRONIC
     Dosage: 30 mcg
     Route: 042
     Dates: start: 20120118, end: 20120706
  2. LOPRESOR [Concomitant]
     Indication: HYPERTENSION
     Dosage: 1/2 twice daily
     Route: 048
     Dates: start: 2000, end: 20120709

REACTIONS (1)
  - Cardiac arrest [Fatal]
